FAERS Safety Report 9494885 (Version 2)
Quarter: 2013Q3

REPORT INFORMATION
  Report Type: Spontaneous
  Country: JP (occurrence: JP)
  Receive Date: 20130903
  Receipt Date: 20130903
  Transmission Date: 20140515
  Serious: Yes (Death)
  Sender: FDA-Public Use
  Company Number: JP-009507513-1308JPN005854

PATIENT
  Age: 31 Year
  Sex: Male

DRUGS (6)
  1. DIAZOXIDE CAPSULES 25 MG ^MSD^ [Suspect]
     Indication: HYPOGLYCAEMIA
     Dosage: 150 MG, QD. DIVIDED DOSE FREQUENCY UNKNOWN
     Route: 048
  2. DIAZOXIDE CAPSULES 25 MG ^MSD^ [Suspect]
     Dosage: 225 MG, QD.  DIVIDED DOSE FREQUENCY UNKNOWN
     Route: 048
  3. DIAZOXIDE CAPSULES 25 MG ^MSD^ [Suspect]
     Dosage: 325 MG, QD. DIVIDED DOSE FREQUENCY UNKNOWN
     Route: 048
  4. DIAZOXIDE CAPSULES 25 MG ^MSD^ [Suspect]
     Dosage: 375 MG, QD.  DIVIDED DOSE FREQUENCY UNKNOWN
     Route: 048
  5. SANDOSTATINE [Concomitant]
     Indication: HYPOGLYCAEMIA
     Dosage: 30 MG, QM
     Route: 030
  6. PHYSIO 35 [Concomitant]
     Indication: HYPOGLYCAEMIA
     Dosage: 100 ML/ H; DAILY DOSE UNKNOWN
     Route: 041

REACTIONS (4)
  - Death [Fatal]
  - Weight increased [Recovering/Resolving]
  - Oedema [Unknown]
  - Nausea [Unknown]
